FAERS Safety Report 4583729-4 (Version None)
Quarter: 2005Q1

REPORT INFORMATION
  Report Type: 
  Country: None (occurrence: None)
  Receive Date: 20050211
  Receipt Date: 20050208
  Transmission Date: 20050727
  Serious: Yes (Hospitalization)
  Sender: FDA-Public Use
  Company Number: 8008687

PATIENT
  Age: 59 Year
  Sex: Male
  Weight: 70.9 kg

DRUGS (3)
  1. KEPPRA [Suspect]
     Indication: NEUROPATHIC PAIN
     Dosage: 250 MG 2/D PO
     Route: 048
     Dates: start: 20050125, end: 20050125
  2. MORPHINE SULFATE [Concomitant]
  3. GLYBURIDE [Concomitant]

REACTIONS (6)
  - ATRIAL FIBRILLATION [None]
  - CHEST PAIN [None]
  - DIZZINESS [None]
  - NAUSEA [None]
  - PALPITATIONS [None]
  - VOMITING [None]
